FAERS Safety Report 8269205-6 (Version None)
Quarter: 2012Q2

REPORT INFORMATION
  Report Type: 
  Country: None (occurrence: None)
  Receive Date: 20120409
  Receipt Date: 20120402
  Transmission Date: 20120825
  Serious: Yes (Disabling)
  Sender: FDA-Public Use
  Company Number: PHHY2012GB016587

PATIENT
  Age: 47 Year
  Sex: Male
  Weight: 96.9 kg

DRUGS (28)
  1. BISOPROLOL FUMARATE [Concomitant]
     Dosage: UNK
     Dates: start: 20111110, end: 20111208
  2. GLYCERYL TRINITRATE [Concomitant]
     Dosage: UNK
     Dates: start: 20111213, end: 20120208
  3. SIMVASTATIN [Concomitant]
     Dosage: UNK
     Dates: start: 20111213, end: 20120208
  4. BISOPROLOL FUMARATE [Concomitant]
     Dosage: UNK
     Dates: start: 20111213, end: 20120208
  5. LAXIDO [Concomitant]
     Dosage: UNK
     Dates: start: 20111213, end: 20120208
  6. RAMIPRIL [Concomitant]
     Dosage: UNK
     Dates: start: 20111110, end: 20111208
  7. BETAMETHASONE VALERATE [Concomitant]
     Dosage: UNK
     Dates: start: 20120117, end: 20120214
  8. OTOMIZE [Concomitant]
     Dosage: UNK
     Dates: start: 20111114, end: 20111205
  9. PROCTOSEDYL [Concomitant]
     Dosage: UNK
     Dates: start: 20111025, end: 20111209
  10. AMLODIPINE [Suspect]
     Dosage: UNK
     Dates: start: 20120117, end: 20120207
  11. ASPIRIN [Concomitant]
     Dosage: UNK
     Dates: start: 20111110, end: 20111208
  12. BENDROFLUMETHIAZIDE [Concomitant]
     Dosage: UNK
     Dates: start: 20111110, end: 20111208
  13. CINCHOCAINE [Concomitant]
     Dosage: UNK
     Dates: start: 20111125, end: 20111205
  14. VALPROATE SODIUM [Concomitant]
     Dosage: UNK
     Dates: start: 20111213, end: 20120208
  15. GLYCERYL TRINITRATE [Concomitant]
     Dosage: UNK
     Dates: start: 20111025, end: 20111209
  16. ACETAMINOPHEN [Concomitant]
     Dosage: UNK
     Dates: start: 20111110, end: 20111208
  17. GLYCEROL 2.6% [Concomitant]
     Dosage: UNK
     Dates: start: 20111207, end: 20111209
  18. LAXIDO [Concomitant]
     Dosage: UNK
     Dates: start: 20111110, end: 20111208
  19. OMEPRAZOLE [Concomitant]
     Dosage: UNK
     Dates: start: 20111110, end: 20111208
  20. OMEPRAZOLE [Concomitant]
     Dosage: UNK
     Dates: start: 20111213, end: 20120208
  21. RAMIPRIL [Concomitant]
     Dosage: UNK
     Dates: start: 20111213, end: 20120208
  22. BENDROFLUMETHIAZIDE [Concomitant]
     Dosage: UNK
     Dates: start: 20111213, end: 20120208
  23. ASPIRIN [Concomitant]
     Dosage: UNK
     Dates: start: 20111213, end: 20120208
  24. ACETAMINOPHEN [Concomitant]
     Dosage: UNK
     Dates: start: 20111213, end: 20120208
  25. PROCTOSEDYL [Concomitant]
     Dosage: UNK
     Dates: start: 20111213, end: 20120208
  26. VALPROATE SODIUM [Concomitant]
     Dosage: UNK
     Dates: start: 20111110, end: 20111208
  27. SENNA [Concomitant]
     Dosage: UNK
     Dates: start: 20111130, end: 20111228
  28. SIMVASTATIN [Concomitant]
     Dosage: UNK
     Dates: start: 20111110, end: 20111208

REACTIONS (1)
  - EPILEPSY [None]
